FAERS Safety Report 25216882 (Version 3)
Quarter: 2025Q2

REPORT INFORMATION
  Report Type: Spontaneous
  Country: US (occurrence: US)
  Receive Date: 20250419
  Receipt Date: 20250510
  Transmission Date: 20250717
  Serious: No
  Sender: SANOFI AVENTIS
  Company Number: US-SA-2025SA109581

PATIENT
  Age: 20 Year
  Sex: Female

DRUGS (6)
  1. TZIELD [Suspect]
     Active Substance: TEPLIZUMAB-MZWV
     Route: 065
     Dates: start: 20250413, end: 20250413
  2. TZIELD [Suspect]
     Active Substance: TEPLIZUMAB-MZWV
     Route: 065
     Dates: start: 20250414, end: 20250414
  3. TZIELD [Suspect]
     Active Substance: TEPLIZUMAB-MZWV
     Route: 065
     Dates: start: 20250415, end: 20250415
  4. TZIELD [Suspect]
     Active Substance: TEPLIZUMAB-MZWV
     Route: 065
     Dates: start: 20250416, end: 20250416
  5. TZIELD [Suspect]
     Active Substance: TEPLIZUMAB-MZWV
     Route: 065
     Dates: start: 20250417, end: 20250423
  6. TYLENOL [Concomitant]
     Active Substance: ACETAMINOPHEN
     Indication: Premedication
     Dosage: 650 MG, QD (DAILY PREINFUSION)
     Dates: start: 20250413, end: 20250426

REACTIONS (5)
  - Abdominal pain upper [Recovered/Resolved]
  - Nausea [Recovered/Resolved]
  - Rash erythematous [Recovering/Resolving]
  - Vomiting [Recovered/Resolved]
  - Rash pruritic [Recovering/Resolving]

NARRATIVE: CASE EVENT DATE: 20250401
